FAERS Safety Report 10380696 (Version 1)
Quarter: 2014Q3

REPORT INFORMATION
  Report Type: Spontaneous
  Country: US (occurrence: US)
  Receive Date: 20140813
  Receipt Date: 20140813
  Transmission Date: 20150326
  Serious: Yes (Hospitalization)
  Sender: FDA-Public Use
  Company Number: US-BAYER-2014-114364

PATIENT
  Age: 72 Year
  Sex: Male
  Weight: 199 kg

DRUGS (6)
  1. ALEVE [Suspect]
     Active Substance: NAPROXEN SODIUM
     Indication: MUSCLE SPASMS
     Dosage: DAILY DOSE 440 MG
  2. ACETYLSALICYLIC ACID({=100 MG) [Suspect]
     Active Substance: ASPIRIN
     Indication: MUSCLE SPASMS
     Dosage: DAILY DOSE 486 MG
  3. DIOVAN [VALSARTAN] [Concomitant]
     Dosage: DAILY DOSE 320 MG
  4. CIALIS [Concomitant]
     Active Substance: TADALAFIL
     Dosage: 10 MG, UNK
  5. NORVASC [Concomitant]
     Active Substance: AMLODIPINE BESYLATE
     Dosage: DAILY DOSE 10 MG
  6. ALEVE [Suspect]
     Active Substance: NAPROXEN SODIUM
     Indication: MUSCLE SPASMS
     Dosage: DAILY DOSE 880 MG

REACTIONS (15)
  - Drug-induced liver injury [Recovered/Resolved]
  - Acute hepatic failure [Recovered/Resolved]
  - Gastrointestinal haemorrhage [Recovered/Resolved]
  - Dysgeusia [None]
  - Laryngitis [None]
  - Muscle spasms [None]
  - Renal failure acute [Recovered/Resolved]
  - Weight decreased [Recovered/Resolved]
  - Aphonia [None]
  - Melaena [Recovered/Resolved]
  - Labelled drug-drug interaction medication error [None]
  - Drug interaction [None]
  - Off label use [None]
  - Nausea [None]
  - Hepatic steatosis [Recovered/Resolved]
